FAERS Safety Report 9609647 (Version 1)
Quarter: 2013Q4

REPORT INFORMATION
  Report Type: Spontaneous
  Country: BR (occurrence: BR)
  Receive Date: 20131009
  Receipt Date: 20131009
  Transmission Date: 20140711
  Serious: Yes (Other)
  Sender: FDA-Public Use
  Company Number: BR-PFIZER INC-2013284529

PATIENT
  Age: 37 Year
  Sex: Female

DRUGS (1)
  1. XALATAN [Suspect]
     Indication: EYE PAIN
     Dosage: ONE DROP IN EACH EYE, 1X/DAY
     Route: 047
     Dates: start: 20130502

REACTIONS (2)
  - Intraocular pressure increased [Unknown]
  - Off label use [Not Recovered/Not Resolved]
